FAERS Safety Report 22971023 (Version 3)
Quarter: 2025Q3

REPORT INFORMATION
  Report Type: Spontaneous
  Country: CA (occurrence: CA)
  Receive Date: 20230922
  Receipt Date: 20250923
  Transmission Date: 20251020
  Serious: Yes (Death, Life-Threatening, Hospitalization, Disabling, Other)
  Sender: NOVARTIS
  Company Number: CA-002147023-NVSC2023CA168718

PATIENT
  Age: 44 Year
  Sex: Female
  Weight: 68 kg

DRUGS (759)
  1. COSENTYX [Suspect]
     Active Substance: SECUKINUMAB
     Indication: Rheumatoid arthritis
     Route: 005
  2. COSENTYX [Suspect]
     Active Substance: SECUKINUMAB
     Indication: Psoriatic arthropathy
     Route: 065
  3. ERELZI [Suspect]
     Active Substance: ETANERCEPT-SZZS
     Indication: Rheumatoid arthritis
     Dosage: 50 MG, QW
     Route: 058
  4. ERELZI [Suspect]
     Active Substance: ETANERCEPT-SZZS
     Route: 065
  5. ERELZI [Suspect]
     Active Substance: ETANERCEPT-SZZS
     Dosage: 50 MG, QW
     Route: 058
  6. ERELZI [Suspect]
     Active Substance: ETANERCEPT-SZZS
     Route: 058
  7. DICLOFENAC SODIUM [Suspect]
     Active Substance: DICLOFENAC SODIUM
     Indication: Product used for unknown indication
     Dosage: 50 MG, QD
     Route: 065
  8. DICLOFENAC SODIUM [Suspect]
     Active Substance: DICLOFENAC SODIUM
     Route: 048
  9. DICLOFENAC SODIUM [Suspect]
     Active Substance: DICLOFENAC SODIUM
     Route: 065
  10. DICLOFENAC SODIUM [Suspect]
     Active Substance: DICLOFENAC SODIUM
     Route: 050
  11. DICLOFENAC SODIUM [Suspect]
     Active Substance: DICLOFENAC SODIUM
     Route: 065
  12. DICLOFENAC SODIUM [Suspect]
     Active Substance: DICLOFENAC SODIUM
     Route: 047
  13. DICLOFENAC SODIUM [Suspect]
     Active Substance: DICLOFENAC SODIUM
     Route: 065
  14. DICLOFENAC SODIUM [Suspect]
     Active Substance: DICLOFENAC SODIUM
     Route: 047
  15. DICLOFENAC SODIUM [Suspect]
     Active Substance: DICLOFENAC SODIUM
     Route: 058
  16. DICLOFENAC SODIUM [Suspect]
     Active Substance: DICLOFENAC SODIUM
     Route: 058
  17. DICLOFENAC POTASSIUM [Suspect]
     Active Substance: DICLOFENAC POTASSIUM
     Indication: Product used for unknown indication
     Route: 065
  18. DICLOFENAC POTASSIUM [Suspect]
     Active Substance: DICLOFENAC POTASSIUM
     Route: 048
  19. DICLOFENAC POTASSIUM [Suspect]
     Active Substance: DICLOFENAC POTASSIUM
     Route: 050
  20. RITUXIMAB [Suspect]
     Active Substance: RITUXIMAB
     Indication: Rheumatoid arthritis
     Route: 042
  21. RITUXIMAB [Suspect]
     Active Substance: RITUXIMAB
     Route: 042
  22. RITUXIMAB [Suspect]
     Active Substance: RITUXIMAB
     Route: 058
  23. RITUXIMAB [Suspect]
     Active Substance: RITUXIMAB
     Route: 065
  24. RITUXIMAB [Suspect]
     Active Substance: RITUXIMAB
     Route: 058
  25. RITUXIMAB [Suspect]
     Active Substance: RITUXIMAB
     Route: 042
  26. RITUXIMAB [Suspect]
     Active Substance: RITUXIMAB
     Route: 041
  27. RITUXIMAB [Suspect]
     Active Substance: RITUXIMAB
     Route: 065
  28. METHOTREXATE [Suspect]
     Active Substance: METHOTREXATE
     Indication: Rheumatoid arthritis
     Dosage: 25 MG, QW
     Route: 058
  29. METHOTREXATE [Suspect]
     Active Substance: METHOTREXATE
     Route: 058
  30. METHOTREXATE [Suspect]
     Active Substance: METHOTREXATE
     Route: 058
  31. METHOTREXATE [Suspect]
     Active Substance: METHOTREXATE
     Dosage: 25 MG, QW
     Route: 013
  32. METHOTREXATE [Suspect]
     Active Substance: METHOTREXATE
     Route: 065
  33. METHOTREXATE [Suspect]
     Active Substance: METHOTREXATE
     Route: 042
  34. METHOTREXATE [Suspect]
     Active Substance: METHOTREXATE
     Route: 065
  35. METHOTREXATE [Suspect]
     Active Substance: METHOTREXATE
     Dosage: 25 MG, QD
     Route: 058
  36. METHOTREXATE [Suspect]
     Active Substance: METHOTREXATE
     Route: 013
  37. METHOTREXATE [Suspect]
     Active Substance: METHOTREXATE
     Dosage: 500 MG, BID
     Route: 065
  38. METHOTREXATE [Suspect]
     Active Substance: METHOTREXATE
     Route: 065
  39. METHOTREXATE [Suspect]
     Active Substance: METHOTREXATE
     Route: 065
  40. METHOTREXATE [Suspect]
     Active Substance: METHOTREXATE
     Dosage: 25 MG, QD
     Route: 013
  41. METHOTREXATE [Suspect]
     Active Substance: METHOTREXATE
     Dosage: 20 MG, QW
     Route: 058
  42. METHOTREXATE [Suspect]
     Active Substance: METHOTREXATE
     Dosage: 20 MG, QW
     Route: 013
  43. METHOTREXATE [Suspect]
     Active Substance: METHOTREXATE
     Dosage: 25 MG, QW
     Route: 058
  44. METHOTREXATE [Suspect]
     Active Substance: METHOTREXATE
     Dosage: 25 MG, QW
     Route: 058
  45. METHOTREXATE [Suspect]
     Active Substance: METHOTREXATE
     Dosage: 25 MG, QW
     Route: 013
  46. METHOTREXATE [Suspect]
     Active Substance: METHOTREXATE
     Route: 013
  47. METHOTREXATE [Suspect]
     Active Substance: METHOTREXATE
     Dosage: 20 MG, QD
     Route: 065
  48. METHOTREXATE [Suspect]
     Active Substance: METHOTREXATE
     Route: 065
  49. METHOTREXATE [Suspect]
     Active Substance: METHOTREXATE
     Dosage: 25 MG, QD
     Route: 013
  50. METHOTREXATE [Suspect]
     Active Substance: METHOTREXATE
     Dosage: 20 MG, QW
     Route: 013
  51. METHOTREXATE [Suspect]
     Active Substance: METHOTREXATE
     Route: 016
  52. METHOTREXATE [Suspect]
     Active Substance: METHOTREXATE
     Route: 065
  53. DICLOFENAC [Suspect]
     Active Substance: DICLOFENAC
     Indication: Product used for unknown indication
     Route: 047
  54. DICLOFENAC [Suspect]
     Active Substance: DICLOFENAC
     Route: 065
  55. DICLOFENAC [Suspect]
     Active Substance: DICLOFENAC
     Route: 047
  56. METHOTREXATE [Suspect]
     Active Substance: METHOTREXATE
     Indication: Rheumatoid arthritis
     Route: 048
  57. METHOTREXATE [Suspect]
     Active Substance: METHOTREXATE
     Route: 048
  58. METHOTREXATE [Suspect]
     Active Substance: METHOTREXATE
     Dosage: 20 MG, QD
     Route: 048
  59. METHOTREXATE [Suspect]
     Active Substance: METHOTREXATE
     Dosage: 20 MG, QW
     Route: 048
  60. METHOTREXATE [Suspect]
     Active Substance: METHOTREXATE
     Route: 048
  61. METHOTREXATE [Suspect]
     Active Substance: METHOTREXATE
     Dosage: 25 MG, QD
     Route: 048
  62. METHOTREXATE [Suspect]
     Active Substance: METHOTREXATE
     Dosage: 25 MG, QW
     Route: 048
  63. METHOTREXATE [Suspect]
     Active Substance: METHOTREXATE
     Route: 048
  64. METHOTREXATE [Suspect]
     Active Substance: METHOTREXATE
     Dosage: 2 G, QD
     Route: 048
  65. METHOTREXATE [Suspect]
     Active Substance: METHOTREXATE
     Dosage: 2 G, QW
     Route: 048
  66. METHOTREXATE [Suspect]
     Active Substance: METHOTREXATE
     Route: 048
  67. METHOTREXATE [Suspect]
     Active Substance: METHOTREXATE
     Dosage: 15 MG, QD
     Route: 048
  68. METHOTREXATE [Suspect]
     Active Substance: METHOTREXATE
     Route: 048
  69. METHOTREXATE [Suspect]
     Active Substance: METHOTREXATE
     Dosage: 2 DOSAGE FORM, QD
     Route: 048
  70. METHOTREXATE [Suspect]
     Active Substance: METHOTREXATE
     Route: 048
  71. METHOTREXATE [Suspect]
     Active Substance: METHOTREXATE
     Route: 048
  72. METHOTREXATE [Suspect]
     Active Substance: METHOTREXATE
     Route: 048
  73. METHOTREXATE [Suspect]
     Active Substance: METHOTREXATE
     Dosage: 25 MG, QD
     Route: 065
  74. METHOTREXATE [Suspect]
     Active Substance: METHOTREXATE
     Route: 065
  75. METHOTREXATE [Suspect]
     Active Substance: METHOTREXATE
     Route: 065
  76. METHOTREXATE [Suspect]
     Active Substance: METHOTREXATE
     Dosage: 25 MG, QD
     Route: 058
  77. METHOTREXATE [Suspect]
     Active Substance: METHOTREXATE
     Route: 065
  78. METHOTREXATE [Suspect]
     Active Substance: METHOTREXATE
     Route: 013
  79. METHOTREXATE [Suspect]
     Active Substance: METHOTREXATE
     Route: 065
  80. METHOTREXATE [Suspect]
     Active Substance: METHOTREXATE
     Route: 058
  81. METHOTREXATE [Suspect]
     Active Substance: METHOTREXATE
     Dosage: 25 MG, QW
     Route: 048
  82. METHOTREXATE [Suspect]
     Active Substance: METHOTREXATE
     Dosage: 500 MG, BID
     Route: 065
  83. METHOTREXATE [Suspect]
     Active Substance: METHOTREXATE
     Dosage: 25 MG, QD
     Route: 013
  84. METHOTREXATE [Suspect]
     Active Substance: METHOTREXATE
     Dosage: UNK, QD
     Route: 048
  85. METHOTREXATE [Suspect]
     Active Substance: METHOTREXATE
     Dosage: 25 MG, QD
     Route: 048
  86. MYCOPHENOLATE MOFETIL [Suspect]
     Active Substance: MYCOPHENOLATE MOFETIL
     Indication: Product used for unknown indication
     Route: 065
  87. MOXIFLOXACIN [Suspect]
     Active Substance: MOXIFLOXACIN
     Indication: Product used for unknown indication
     Route: 058
  88. ALENDRONATE SODIUM [Suspect]
     Active Substance: ALENDRONATE SODIUM
     Indication: Rheumatoid arthritis
     Route: 065
  89. PREGABALIN [Suspect]
     Active Substance: PREGABALIN
     Indication: Product used for unknown indication
     Route: 065
  90. OXYCODONE HYDROCHLORIDE [Suspect]
     Active Substance: OXYCODONE HYDROCHLORIDE
     Indication: Product used for unknown indication
     Route: 065
  91. ADALIMUMAB [Suspect]
     Active Substance: ADALIMUMAB
     Indication: Psoriatic arthropathy
     Route: 058
  92. ADALIMUMAB [Suspect]
     Active Substance: ADALIMUMAB
     Indication: Rheumatoid arthritis
     Route: 042
  93. ADALIMUMAB [Suspect]
     Active Substance: ADALIMUMAB
     Route: 058
  94. ADALIMUMAB [Suspect]
     Active Substance: ADALIMUMAB
     Route: 058
  95. ADALIMUMAB [Suspect]
     Active Substance: ADALIMUMAB
     Route: 048
  96. ADALIMUMAB [Suspect]
     Active Substance: ADALIMUMAB
     Route: 042
  97. VOLTAREN [Suspect]
     Active Substance: DICLOFENAC SODIUM
     Indication: Product used for unknown indication
     Route: 065
  98. VOLTAREN [Suspect]
     Active Substance: DICLOFENAC SODIUM
     Route: 065
  99. VOLTAREN [Suspect]
     Active Substance: DICLOFENAC SODIUM
     Route: 065
  100. ARAVA [Suspect]
     Active Substance: LEFLUNOMIDE
     Indication: Rheumatoid arthritis
     Route: 048
  101. ARAVA [Suspect]
     Active Substance: LEFLUNOMIDE
     Dosage: 20.0 MG
     Route: 048
  102. ARAVA [Suspect]
     Active Substance: LEFLUNOMIDE
     Route: 065
  103. ARAVA [Suspect]
     Active Substance: LEFLUNOMIDE
     Route: 048
  104. ARAVA [Suspect]
     Active Substance: LEFLUNOMIDE
     Dosage: 20 MG, QD
     Route: 048
  105. ARAVA [Suspect]
     Active Substance: LEFLUNOMIDE
     Route: 065
  106. ARAVA [Suspect]
     Active Substance: LEFLUNOMIDE
     Route: 048
  107. ARAVA [Suspect]
     Active Substance: LEFLUNOMIDE
     Route: 019
  108. ARAVA [Suspect]
     Active Substance: LEFLUNOMIDE
     Route: 005
  109. TOPICORT [Suspect]
     Active Substance: DESOXIMETASONE
     Indication: Rheumatoid arthritis
     Route: 065
  110. TOPICORT [Suspect]
     Active Substance: DESOXIMETASONE
     Route: 048
  111. TOPICORT [Suspect]
     Active Substance: DESOXIMETASONE
     Route: 065
  112. TOPICORT [Suspect]
     Active Substance: DESOXIMETASONE
     Route: 050
  113. TOPICORT [Suspect]
     Active Substance: DESOXIMETASONE
     Route: 058
  114. PANTOPRAZOLE SODIUM ANHYDROUS [Suspect]
     Active Substance: PANTOPRAZOLE SODIUM ANHYDROUS
     Indication: Product used for unknown indication
     Route: 065
  115. PANTOPRAZOLE SODIUM ANHYDROUS [Suspect]
     Active Substance: PANTOPRAZOLE SODIUM ANHYDROUS
     Route: 016
  116. DILTIAZEM [Suspect]
     Active Substance: DILTIAZEM
     Indication: Product used for unknown indication
     Route: 065
  117. PREDNISOLONE [Suspect]
     Active Substance: PREDNISOLONE
     Indication: Product used for unknown indication
     Route: 048
  118. PANTOPRAZOLE [Suspect]
     Active Substance: PANTOPRAZOLE
     Indication: Product used for unknown indication
     Route: 016
  119. PANTOPRAZOLE [Suspect]
     Active Substance: PANTOPRAZOLE
     Route: 065
  120. OXYCODONE [Suspect]
     Active Substance: OXYCODONE
     Indication: Product used for unknown indication
     Route: 065
  121. OXYCODONE [Suspect]
     Active Substance: OXYCODONE
     Route: 042
  122. OXYCODONE [Suspect]
     Active Substance: OXYCODONE
     Route: 065
  123. OXYCODONE [Suspect]
     Active Substance: OXYCODONE
     Route: 065
  124. DILTIAZEM HYDROCHLORIDE [Suspect]
     Active Substance: DILTIAZEM HYDROCHLORIDE
     Indication: Product used for unknown indication
     Route: 042
  125. DILTIAZEM HYDROCHLORIDE [Suspect]
     Active Substance: DILTIAZEM HYDROCHLORIDE
     Route: 065
  126. APREMILAST [Suspect]
     Active Substance: APREMILAST
     Indication: Product used for unknown indication
     Route: 065
  127. APREMILAST [Suspect]
     Active Substance: APREMILAST
     Route: 048
  128. APREMILAST [Suspect]
     Active Substance: APREMILAST
     Route: 065
  129. FOLIC ACID [Suspect]
     Active Substance: FOLIC ACID
     Indication: Rheumatoid arthritis
     Route: 065
  130. FOLIC ACID [Suspect]
     Active Substance: FOLIC ACID
     Route: 065
  131. FOLIC ACID [Suspect]
     Active Substance: FOLIC ACID
     Route: 065
  132. FOLIC ACID [Suspect]
     Active Substance: FOLIC ACID
     Route: 065
  133. FOLIC ACID [Suspect]
     Active Substance: FOLIC ACID
     Route: 065
  134. FOLIC ACID [Suspect]
     Active Substance: FOLIC ACID
     Route: 065
  135. FOLIC ACID [Suspect]
     Active Substance: FOLIC ACID
     Route: 065
  136. FOLIC ACID [Suspect]
     Active Substance: FOLIC ACID
     Route: 048
  137. FOLIC ACID [Suspect]
     Active Substance: FOLIC ACID
     Dosage: 5 MG, QD
     Route: 065
  138. FOLIC ACID [Suspect]
     Active Substance: FOLIC ACID
     Route: 048
  139. FOLIC ACID [Suspect]
     Active Substance: FOLIC ACID
     Route: 065
  140. FOLIC ACID [Suspect]
     Active Substance: FOLIC ACID
     Route: 065
  141. FOLIC ACID [Suspect]
     Active Substance: FOLIC ACID
     Route: 048
  142. FOLIC ACID [Suspect]
     Active Substance: FOLIC ACID
     Route: 065
  143. FOLIC ACID [Suspect]
     Active Substance: FOLIC ACID
     Route: 048
  144. FOLIC ACID [Suspect]
     Active Substance: FOLIC ACID
     Route: 048
  145. FOLIC ACID [Suspect]
     Active Substance: FOLIC ACID
     Dosage: 1 MG, QD
     Route: 065
  146. FOLIC ACID [Suspect]
     Active Substance: FOLIC ACID
     Dosage: 1 MG, QD
     Route: 065
  147. FOLIC ACID [Suspect]
     Active Substance: FOLIC ACID
     Route: 058
  148. FOLIC ACID [Suspect]
     Active Substance: FOLIC ACID
     Route: 048
  149. FOLIC ACID [Suspect]
     Active Substance: FOLIC ACID
     Route: 065
  150. FOLIC ACID [Suspect]
     Active Substance: FOLIC ACID
     Route: 065
  151. FOLIC ACID [Suspect]
     Active Substance: FOLIC ACID
     Route: 048
  152. FOLIC ACID [Suspect]
     Active Substance: FOLIC ACID
     Route: 065
  153. FOLIC ACID [Suspect]
     Active Substance: FOLIC ACID
     Route: 065
  154. FOLIC ACID [Suspect]
     Active Substance: FOLIC ACID
     Route: 016
  155. FOLIC ACID [Suspect]
     Active Substance: FOLIC ACID
     Route: 065
  156. FOLIC ACID [Suspect]
     Active Substance: FOLIC ACID
     Route: 048
  157. FOLIC ACID [Suspect]
     Active Substance: FOLIC ACID
     Route: 048
  158. FOLIC ACID [Suspect]
     Active Substance: FOLIC ACID
     Route: 048
  159. FOLIC ACID [Suspect]
     Active Substance: FOLIC ACID
     Route: 065
  160. FOLIC ACID [Suspect]
     Active Substance: FOLIC ACID
     Route: 048
  161. FOLIC ACID [Suspect]
     Active Substance: FOLIC ACID
     Route: 048
  162. FOLIC ACID [Suspect]
     Active Substance: FOLIC ACID
     Dosage: 5 MG, QD
     Route: 065
  163. TRIAMCINOLONE ACETONIDE [Suspect]
     Active Substance: TRIAMCINOLONE ACETONIDE
     Indication: Rheumatoid arthritis
     Route: 014
  164. LEFLUNOMIDE [Suspect]
     Active Substance: LEFLUNOMIDE
     Indication: Rheumatoid arthritis
     Route: 048
  165. LEFLUNOMIDE [Suspect]
     Active Substance: LEFLUNOMIDE
     Route: 048
  166. LEFLUNOMIDE [Suspect]
     Active Substance: LEFLUNOMIDE
     Route: 065
  167. LEFLUNOMIDE [Suspect]
     Active Substance: LEFLUNOMIDE
     Route: 048
  168. CALCIUM CARBONATE [Suspect]
     Active Substance: CALCIUM CARBONATE
     Indication: Product used for unknown indication
     Route: 065
  169. CALCIUM CARBONATE [Suspect]
     Active Substance: CALCIUM CARBONATE
     Route: 065
  170. ABATACEPT [Suspect]
     Active Substance: ABATACEPT
     Indication: Rheumatoid arthritis
     Route: 042
  171. DICLOFENAC SODIUM [Suspect]
     Active Substance: DICLOFENAC SODIUM
     Indication: Product used for unknown indication
     Route: 048
  172. DICLOFENAC SODIUM [Suspect]
     Active Substance: DICLOFENAC SODIUM
     Route: 047
  173. DICLOFENAC SODIUM [Suspect]
     Active Substance: DICLOFENAC SODIUM
     Route: 065
  174. DICLOFENAC SODIUM [Suspect]
     Active Substance: DICLOFENAC SODIUM
     Route: 065
  175. ACETAMINOPHEN [Suspect]
     Active Substance: ACETAMINOPHEN
     Indication: Rheumatoid arthritis
     Route: 065
  176. ACETAMINOPHEN [Suspect]
     Active Substance: ACETAMINOPHEN
     Indication: Pyrexia
     Route: 065
  177. ACETAMINOPHEN [Suspect]
     Active Substance: ACETAMINOPHEN
     Indication: Pain
     Route: 065
  178. HYDROCORTISONE [Suspect]
     Active Substance: HYDROCORTISONE
     Indication: Rheumatoid arthritis
     Route: 048
  179. HYDROCORTISONE [Suspect]
     Active Substance: HYDROCORTISONE
     Route: 058
  180. HYDROCORTISONE [Suspect]
     Active Substance: HYDROCORTISONE
     Route: 061
  181. HYDROCORTISONE [Suspect]
     Active Substance: HYDROCORTISONE
     Route: 048
  182. HYDROCORTISONE [Suspect]
     Active Substance: HYDROCORTISONE
     Route: 065
  183. HYDROCORTISONE [Suspect]
     Active Substance: HYDROCORTISONE
     Route: 003
  184. HYDROCORTISONE [Suspect]
     Active Substance: HYDROCORTISONE
     Route: 058
  185. HYDROCORTISONE [Suspect]
     Active Substance: HYDROCORTISONE
     Route: 065
  186. METHOTREXATE SODIUM [Suspect]
     Active Substance: METHOTREXATE SODIUM
     Indication: Rheumatoid arthritis
     Route: 058
  187. METHOTREXATE SODIUM [Suspect]
     Active Substance: METHOTREXATE SODIUM
     Route: 048
  188. METHOTREXATE SODIUM [Suspect]
     Active Substance: METHOTREXATE SODIUM
     Dosage: 25 MG, QW
     Route: 048
  189. METHOTREXATE SODIUM [Suspect]
     Active Substance: METHOTREXATE SODIUM
     Route: 048
  190. ACETAMINOPHEN AND CODEINE [Suspect]
     Active Substance: ACETAMINOPHEN\CODEINE PHOSPHATE
     Indication: Product used for unknown indication
     Route: 065
  191. ACTEMRA [Suspect]
     Active Substance: TOCILIZUMAB
     Indication: Rheumatoid arthritis
     Route: 065
  192. ACTEMRA [Suspect]
     Active Substance: TOCILIZUMAB
     Route: 065
  193. ACTEMRA [Suspect]
     Active Substance: TOCILIZUMAB
     Route: 065
  194. ACTEMRA [Suspect]
     Active Substance: TOCILIZUMAB
     Route: 042
  195. ACTEMRA [Suspect]
     Active Substance: TOCILIZUMAB
     Route: 042
  196. ACTEMRA [Suspect]
     Active Substance: TOCILIZUMAB
     Dosage: 1 DOSAGE FORM, QW
     Route: 042
  197. ACTEMRA [Suspect]
     Active Substance: TOCILIZUMAB
     Dosage: 2912 MG, QW
     Route: 042
  198. ACTEMRA [Suspect]
     Active Substance: TOCILIZUMAB
     Route: 048
  199. ACTEMRA [Suspect]
     Active Substance: TOCILIZUMAB
     Route: 048
  200. ACTEMRA [Suspect]
     Active Substance: TOCILIZUMAB
     Dosage: 1 DOSAGE FORM, QW
     Route: 058
  201. ACTEMRA [Suspect]
     Active Substance: TOCILIZUMAB
     Route: 065
  202. ACTEMRA [Suspect]
     Active Substance: TOCILIZUMAB
     Route: 042
  203. ACTEMRA [Suspect]
     Active Substance: TOCILIZUMAB
     Route: 042
  204. ACTEMRA [Suspect]
     Active Substance: TOCILIZUMAB
     Route: 042
  205. ACTEMRA [Suspect]
     Active Substance: TOCILIZUMAB
     Route: 042
  206. ACTEMRA [Suspect]
     Active Substance: TOCILIZUMAB
     Route: 042
  207. ACTEMRA [Suspect]
     Active Substance: TOCILIZUMAB
     Dosage: 3011.2 MG, QW
     Route: 058
  208. ACTEMRA [Suspect]
     Active Substance: TOCILIZUMAB
     Route: 058
  209. ACTEMRA [Suspect]
     Active Substance: TOCILIZUMAB
     Route: 065
  210. ACTEMRA [Suspect]
     Active Substance: TOCILIZUMAB
     Route: 042
  211. ACTEMRA [Suspect]
     Active Substance: TOCILIZUMAB
     Route: 042
  212. ACTEMRA [Suspect]
     Active Substance: TOCILIZUMAB
     Dosage: 2912 MG, QW
     Route: 042
  213. ACTEMRA [Suspect]
     Active Substance: TOCILIZUMAB
     Route: 048
  214. ACTEMRA [Suspect]
     Active Substance: TOCILIZUMAB
     Dosage: 752 MG, QW
     Route: 042
  215. ACTEMRA [Suspect]
     Active Substance: TOCILIZUMAB
     Route: 042
  216. ACTEMRA [Suspect]
     Active Substance: TOCILIZUMAB
     Route: 016
  217. ACTEMRA [Suspect]
     Active Substance: TOCILIZUMAB
     Route: 058
  218. ACTEMRA [Suspect]
     Active Substance: TOCILIZUMAB
     Route: 065
  219. ACTEMRA [Suspect]
     Active Substance: TOCILIZUMAB
     Route: 042
  220. ACTEMRA [Suspect]
     Active Substance: TOCILIZUMAB
     Route: 042
  221. ACTEMRA [Suspect]
     Active Substance: TOCILIZUMAB
     Route: 042
  222. ACTEMRA [Suspect]
     Active Substance: TOCILIZUMAB
     Route: 042
  223. ACTEMRA [Suspect]
     Active Substance: TOCILIZUMAB
     Route: 065
  224. ACTEMRA [Suspect]
     Active Substance: TOCILIZUMAB
     Route: 065
  225. ACTEMRA [Suspect]
     Active Substance: TOCILIZUMAB
     Route: 065
  226. ACTEMRA [Suspect]
     Active Substance: TOCILIZUMAB
     Route: 058
  227. ACTEMRA [Suspect]
     Active Substance: TOCILIZUMAB
     Route: 065
  228. ALENDRONATE SODIUM\CHOLECALCIFEROL [Suspect]
     Active Substance: ALENDRONATE SODIUM\CHOLECALCIFEROL
     Indication: Rheumatoid arthritis
     Route: 048
  229. ALENDRONATE SODIUM\CHOLECALCIFEROL [Suspect]
     Active Substance: ALENDRONATE SODIUM\CHOLECALCIFEROL
     Route: 065
  230. PREDNISONE [Suspect]
     Active Substance: PREDNISONE
     Indication: Rheumatoid arthritis
     Route: 048
  231. PREDNISONE [Suspect]
     Active Substance: PREDNISONE
     Indication: Systemic lupus erythematosus
     Route: 048
  232. PREDNISONE [Suspect]
     Active Substance: PREDNISONE
     Indication: Synovitis
     Route: 048
  233. PREDNISONE [Suspect]
     Active Substance: PREDNISONE
     Indication: Psoriatic arthropathy
     Route: 065
  234. PREDNISONE [Suspect]
     Active Substance: PREDNISONE
     Indication: Pemphigus
     Route: 065
  235. PREDNISONE [Suspect]
     Active Substance: PREDNISONE
     Indication: Inflammation
     Route: 048
  236. PREDNISONE [Suspect]
     Active Substance: PREDNISONE
     Indication: Bursitis
  237. APREPITANT [Suspect]
     Active Substance: APREPITANT
     Indication: Product used for unknown indication
     Route: 042
  238. APREPITANT [Suspect]
     Active Substance: APREPITANT
     Route: 065
  239. APREPITANT [Suspect]
     Active Substance: APREPITANT
     Route: 048
  240. APREPITANT [Suspect]
     Active Substance: APREPITANT
     Route: 065
  241. ALENDRONIC ACID [Suspect]
     Active Substance: ALENDRONIC ACID
     Indication: Rheumatoid arthritis
     Route: 048
  242. ALENDRONIC ACID [Suspect]
     Active Substance: ALENDRONIC ACID
     Route: 065
  243. ALENDRONIC ACID [Suspect]
     Active Substance: ALENDRONIC ACID
     Route: 065
  244. ALENDRONIC ACID [Suspect]
     Active Substance: ALENDRONIC ACID
     Route: 016
  245. ALENDRONIC ACID [Suspect]
     Active Substance: ALENDRONIC ACID
     Route: 048
  246. ALENDRONIC ACID [Suspect]
     Active Substance: ALENDRONIC ACID
     Route: 048
  247. CALCIUM GLUBIONATE [Suspect]
     Active Substance: CALCIUM GLUBIONATE
     Indication: Product used for unknown indication
     Route: 016
  248. CALCIUM GLUBIONATE [Suspect]
     Active Substance: CALCIUM GLUBIONATE
     Route: 065
  249. CALCIUM GLUBIONATE [Suspect]
     Active Substance: CALCIUM GLUBIONATE
     Route: 016
  250. CELEBREX [Suspect]
     Active Substance: CELECOXIB
     Indication: Arthritis
     Dosage: 2 DOSAGE FORM, QD
     Route: 048
  251. CELEBREX [Suspect]
     Active Substance: CELECOXIB
     Dosage: 1 DOSAGE FORM, QD
     Route: 048
  252. CHLORAPREP [Suspect]
     Active Substance: CHLORHEXIDINE GLUCONATE\ISOPROPYL ALCOHOL
     Indication: Product used for unknown indication
     Route: 065
  253. CHLORAPREP [Suspect]
     Active Substance: CHLORHEXIDINE GLUCONATE\ISOPROPYL ALCOHOL
     Route: 048
  254. CHLORAPREP [Suspect]
     Active Substance: CHLORHEXIDINE GLUCONATE\ISOPROPYL ALCOHOL
     Route: 065
  255. CELECOXIB [Suspect]
     Active Substance: CELECOXIB
     Indication: Product used for unknown indication
     Route: 065
  256. CELECOXIB [Suspect]
     Active Substance: CELECOXIB
     Dosage: 1 DOSAGE FORM, QD
     Route: 065
  257. CELECOXIB [Suspect]
     Active Substance: CELECOXIB
     Route: 065
  258. CERTOLIZUMAB PEGOL [Suspect]
     Active Substance: CERTOLIZUMAB PEGOL
     Indication: Product used for unknown indication
     Route: 065
  259. CETIRIZINE [Suspect]
     Active Substance: CETIRIZINE HYDROCHLORIDE
     Indication: Rheumatoid arthritis
     Route: 065
  260. CETIRIZINE [Suspect]
     Active Substance: CETIRIZINE HYDROCHLORIDE
     Route: 048
  261. CETIRIZINE [Suspect]
     Active Substance: CETIRIZINE HYDROCHLORIDE
     Route: 065
  262. CETIRIZINE [Suspect]
     Active Substance: CETIRIZINE HYDROCHLORIDE
     Route: 048
  263. CETIRIZINE [Suspect]
     Active Substance: CETIRIZINE HYDROCHLORIDE
     Route: 065
  264. CETIRIZINE [Suspect]
     Active Substance: CETIRIZINE HYDROCHLORIDE
     Dosage: 10 MG, QD
     Route: 048
  265. CETIRIZINE [Suspect]
     Active Substance: CETIRIZINE HYDROCHLORIDE
     Route: 065
  266. CETIRIZINE [Suspect]
     Active Substance: CETIRIZINE HYDROCHLORIDE
     Route: 065
  267. CHOLECALCIFEROL [Suspect]
     Active Substance: CHOLECALCIFEROL
     Indication: Product used for unknown indication
     Route: 016
  268. CIMZIA [Suspect]
     Active Substance: CERTOLIZUMAB PEGOL
     Indication: Rheumatoid arthritis
     Route: 058
  269. CIMZIA [Suspect]
     Active Substance: CERTOLIZUMAB PEGOL
     Indication: Psoriasis
     Route: 058
  270. CIMZIA [Suspect]
     Active Substance: CERTOLIZUMAB PEGOL
     Indication: Psoriatic arthropathy
     Route: 042
  271. CIMZIA [Suspect]
     Active Substance: CERTOLIZUMAB PEGOL
     Dosage: 1 DOSAGE FORM, QD
     Route: 058
  272. CIMZIA [Suspect]
     Active Substance: CERTOLIZUMAB PEGOL
     Route: 065
  273. CIMZIA [Suspect]
     Active Substance: CERTOLIZUMAB PEGOL
     Route: 058
  274. CIMZIA [Suspect]
     Active Substance: CERTOLIZUMAB PEGOL
     Route: 065
  275. CIMZIA [Suspect]
     Active Substance: CERTOLIZUMAB PEGOL
     Route: 005
  276. CIMZIA [Suspect]
     Active Substance: CERTOLIZUMAB PEGOL
     Route: 058
  277. CIMZIA [Suspect]
     Active Substance: CERTOLIZUMAB PEGOL
     Route: 058
  278. CIMZIA [Suspect]
     Active Substance: CERTOLIZUMAB PEGOL
     Route: 065
  279. CIMZIA [Suspect]
     Active Substance: CERTOLIZUMAB PEGOL
     Route: 058
  280. CIMZIA [Suspect]
     Active Substance: CERTOLIZUMAB PEGOL
     Route: 058
  281. CIMZIA [Suspect]
     Active Substance: CERTOLIZUMAB PEGOL
     Route: 058
  282. HYDROCORTISONE ACETATE [Suspect]
     Active Substance: HYDROCORTISONE ACETATE
     Indication: Rheumatoid arthritis
     Route: 048
  283. HYDROCORTISONE ACETATE [Suspect]
     Active Substance: HYDROCORTISONE ACETATE
     Route: 061
  284. HYDROCORTISONE ACETATE [Suspect]
     Active Substance: HYDROCORTISONE ACETATE
     Route: 058
  285. HYDROCORTISONE ACETATE [Suspect]
     Active Substance: HYDROCORTISONE ACETATE
     Route: 065
  286. HYDROCORTISONE ACETATE [Suspect]
     Active Substance: HYDROCORTISONE ACETATE
     Route: 065
  287. HYDROCORTISONE ACETATE [Suspect]
     Active Substance: HYDROCORTISONE ACETATE
     Route: 065
  288. HYDROCORTISONE ACETATE [Suspect]
     Active Substance: HYDROCORTISONE ACETATE
     Route: 058
  289. HYDROCORTISONE ACETATE [Suspect]
     Active Substance: HYDROCORTISONE ACETATE
     Route: 003
  290. HYDROCORTISONE ACETATE [Suspect]
     Active Substance: HYDROCORTISONE ACETATE
     Route: 048
  291. HYDROCORTISONE ACETATE [Suspect]
     Active Substance: HYDROCORTISONE ACETATE
     Route: 003
  292. HYDROCORTISONE ACETATE [Suspect]
     Active Substance: HYDROCORTISONE ACETATE
     Route: 048
  293. HYDROCORTISONE ACETATE [Suspect]
     Active Substance: HYDROCORTISONE ACETATE
     Route: 065
  294. HYDROCORTISONE ACETATE [Suspect]
     Active Substance: HYDROCORTISONE ACETATE
     Route: 058
  295. HYDROCORTISONE ACETATE [Suspect]
     Active Substance: HYDROCORTISONE ACETATE
     Route: 050
  296. HYDROCORTISONE ACETATE [Suspect]
     Active Substance: HYDROCORTISONE ACETATE
     Route: 058
  297. HYDROCORTISONE ACETATE [Suspect]
     Active Substance: HYDROCORTISONE ACETATE
     Route: 065
  298. CORTISONE ACETATE [Suspect]
     Active Substance: CORTISONE ACETATE
     Indication: Rheumatoid arthritis
     Route: 065
  299. CORTISONE ACETATE [Suspect]
     Active Substance: CORTISONE ACETATE
     Route: 065
  300. CORTISONE ACETATE [Suspect]
     Active Substance: CORTISONE ACETATE
     Route: 048
  301. CORTISONE ACETATE [Suspect]
     Active Substance: CORTISONE ACETATE
     Route: 048
  302. CORTISONE ACETATE [Suspect]
     Active Substance: CORTISONE ACETATE
     Route: 065
  303. CORTISONE ACETATE [Suspect]
     Active Substance: CORTISONE ACETATE
     Route: 065
  304. CORTISONE ACETATE [Suspect]
     Active Substance: CORTISONE ACETATE
     Route: 048
  305. CORTISONE ACETATE [Suspect]
     Active Substance: CORTISONE ACETATE
     Route: 050
  306. CORTISONE ACETATE [Suspect]
     Active Substance: CORTISONE ACETATE
     Route: 065
  307. DESOXIMETASONE [Suspect]
     Active Substance: DESOXIMETASONE
     Indication: Rheumatoid arthritis
     Route: 003
  308. DESOXIMETASONE [Suspect]
     Active Substance: DESOXIMETASONE
     Route: 065
  309. DESOXIMETASONE [Suspect]
     Active Substance: DESOXIMETASONE
     Route: 058
  310. DESOXIMETASONE [Suspect]
     Active Substance: DESOXIMETASONE
     Route: 048
  311. DESOXIMETASONE [Suspect]
     Active Substance: DESOXIMETASONE
     Route: 065
  312. DESOXIMETASONE [Suspect]
     Active Substance: DESOXIMETASONE
     Route: 048
  313. DESOXIMETASONE [Suspect]
     Active Substance: DESOXIMETASONE
     Dosage: 25 MG, QW
     Route: 065
  314. DESOXIMETASONE [Suspect]
     Active Substance: DESOXIMETASONE
     Route: 048
  315. DESOXIMETASONE [Suspect]
     Active Substance: DESOXIMETASONE
     Route: 065
  316. DESOXIMETASONE [Suspect]
     Active Substance: DESOXIMETASONE
     Route: 042
  317. DESOXIMETASONE [Suspect]
     Active Substance: DESOXIMETASONE
     Route: 065
  318. DICLOFENAC DIETHYLAMINE [Suspect]
     Active Substance: DICLOFENAC DIETHYLAMINE
     Indication: Product used for unknown indication
     Route: 065
  319. DOXYCYCLINE [Suspect]
     Active Substance: DOXYCYCLINE
     Indication: Product used for unknown indication
     Route: 065
  320. EMEND [Suspect]
     Active Substance: APREPITANT
     Indication: Product used for unknown indication
     Route: 042
  321. EMEND [Suspect]
     Active Substance: APREPITANT
     Route: 042
  322. ENBREL [Suspect]
     Active Substance: ETANERCEPT
     Indication: Rheumatoid arthritis
     Route: 058
  323. ENBREL [Suspect]
     Active Substance: ETANERCEPT
     Indication: Psoriatic arthropathy
     Route: 065
  324. ENBREL [Suspect]
     Active Substance: ETANERCEPT
     Dosage: 50 MG, QW
     Route: 058
  325. ENBREL [Suspect]
     Active Substance: ETANERCEPT
     Route: 058
  326. ENBREL [Suspect]
     Active Substance: ETANERCEPT
     Dosage: 20 MG, QW
     Route: 058
  327. ENBREL [Suspect]
     Active Substance: ETANERCEPT
     Route: 065
  328. ENBREL [Suspect]
     Active Substance: ETANERCEPT
     Route: 058
  329. ENBREL [Suspect]
     Active Substance: ETANERCEPT
     Dosage: 50 MG, QW
     Route: 058
  330. ENBREL [Suspect]
     Active Substance: ETANERCEPT
     Route: 058
  331. ENBREL [Suspect]
     Active Substance: ETANERCEPT
     Route: 058
  332. ENBREL [Suspect]
     Active Substance: ETANERCEPT
     Dosage: 20 MG, QW
     Route: 058
  333. ENBREL [Suspect]
     Active Substance: ETANERCEPT
     Route: 065
  334. ENBREL [Suspect]
     Active Substance: ETANERCEPT
     Dosage: 20 MG, QD
     Route: 058
  335. ENBREL [Suspect]
     Active Substance: ETANERCEPT
     Route: 058
  336. ENBREL [Suspect]
     Active Substance: ETANERCEPT
     Dosage: 50 MG, QW
     Route: 058
  337. ENBREL [Suspect]
     Active Substance: ETANERCEPT
     Route: 058
  338. ENBREL [Suspect]
     Active Substance: ETANERCEPT
     Route: 065
  339. FOSAMAX [Suspect]
     Active Substance: ALENDRONATE SODIUM
     Indication: Rheumatoid arthritis
     Route: 048
  340. FOSAMAX [Suspect]
     Active Substance: ALENDRONATE SODIUM
     Route: 065
  341. FOSAMAX [Suspect]
     Active Substance: ALENDRONATE SODIUM
     Route: 048
  342. FOSAMAX [Suspect]
     Active Substance: ALENDRONATE SODIUM
     Route: 048
  343. GOLIMUMAB [Suspect]
     Active Substance: GOLIMUMAB
     Indication: Rheumatoid arthritis
     Route: 058
  344. GOLIMUMAB [Suspect]
     Active Substance: GOLIMUMAB
     Route: 065
  345. HUMIRA [Suspect]
     Active Substance: ADALIMUMAB
     Indication: Rheumatoid arthritis
     Route: 058
  346. HUMIRA [Suspect]
     Active Substance: ADALIMUMAB
     Indication: Psoriatic arthropathy
     Route: 058
  347. HUMIRA [Suspect]
     Active Substance: ADALIMUMAB
     Route: 058
  348. HUMIRA [Suspect]
     Active Substance: ADALIMUMAB
     Route: 058
  349. HUMIRA [Suspect]
     Active Substance: ADALIMUMAB
     Route: 058
  350. HUMIRA [Suspect]
     Active Substance: ADALIMUMAB
     Route: 058
  351. HUMIRA [Suspect]
     Active Substance: ADALIMUMAB
     Route: 058
  352. HUMIRA [Suspect]
     Active Substance: ADALIMUMAB
     Route: 065
  353. HUMIRA [Suspect]
     Active Substance: ADALIMUMAB
     Route: 057
  354. HUMIRA [Suspect]
     Active Substance: ADALIMUMAB
     Route: 065
  355. HUMIRA [Suspect]
     Active Substance: ADALIMUMAB
     Route: 058
  356. HUMIRA [Suspect]
     Active Substance: ADALIMUMAB
     Route: 065
  357. HYDROCORTISONE ACETATE [Suspect]
     Active Substance: HYDROCORTISONE ACETATE
     Indication: Rheumatoid arthritis
     Route: 058
  358. HYDROCORTISONE ACETATE [Suspect]
     Active Substance: HYDROCORTISONE ACETATE
     Route: 065
  359. HYDROCORTISONE ACETATE [Suspect]
     Active Substance: HYDROCORTISONE ACETATE
     Route: 065
  360. HYDROCORTISONE ACETATE [Suspect]
     Active Substance: HYDROCORTISONE ACETATE
     Route: 065
  361. HYDROCORTISONE ACETATE [Suspect]
     Active Substance: HYDROCORTISONE ACETATE
     Route: 065
  362. HYDROCORTISONE BUTYRATE [Suspect]
     Active Substance: HYDROCORTISONE BUTYRATE
     Indication: Rheumatoid arthritis
     Route: 058
  363. HYDROCORTISONE BUTYRATE [Suspect]
     Active Substance: HYDROCORTISONE BUTYRATE
     Route: 065
  364. HYDROCORTISONE BUTYRATE [Suspect]
     Active Substance: HYDROCORTISONE BUTYRATE
     Route: 050
  365. HYDROCORTISONE BUTYRATE [Suspect]
     Active Substance: HYDROCORTISONE BUTYRATE
     Route: 065
  366. HYDROCORTISONE BUTYRATE [Suspect]
     Active Substance: HYDROCORTISONE BUTYRATE
     Route: 048
  367. HYDROCORTISONE SODIUM SUCCINATE [Suspect]
     Active Substance: HYDROCORTISONE SODIUM SUCCINATE
     Indication: Rheumatoid arthritis
     Route: 048
  368. HYDROCORTISONE SODIUM SUCCINATE [Suspect]
     Active Substance: HYDROCORTISONE SODIUM SUCCINATE
     Route: 065
  369. HYDROCORTISONE SODIUM SUCCINATE [Suspect]
     Active Substance: HYDROCORTISONE SODIUM SUCCINATE
     Route: 065
  370. HYDROXYCHLOROQUINE [Suspect]
     Active Substance: HYDROXYCHLOROQUINE
     Indication: Rheumatoid arthritis
     Route: 065
  371. HYDROXYCHLOROQUINE [Suspect]
     Active Substance: HYDROXYCHLOROQUINE
     Dosage: 400 MG, QD
     Route: 048
  372. HYDROXYCHLOROQUINE [Suspect]
     Active Substance: HYDROXYCHLOROQUINE
     Route: 048
  373. HYDROXYCHLOROQUINE [Suspect]
     Active Substance: HYDROXYCHLOROQUINE
     Route: 058
  374. HYDROXYCHLOROQUINE [Suspect]
     Active Substance: HYDROXYCHLOROQUINE
     Route: 048
  375. HYDROXYCHLOROQUINE [Suspect]
     Active Substance: HYDROXYCHLOROQUINE
     Route: 065
  376. HYDROXYCHLOROQUINE [Suspect]
     Active Substance: HYDROXYCHLOROQUINE
     Dosage: 40 MG, QD
     Route: 065
  377. HYDROXYCHLOROQUINE [Suspect]
     Active Substance: HYDROXYCHLOROQUINE
     Dosage: 400 MG, QD
     Route: 048
  378. HYDROXYCHLOROQUINE [Suspect]
     Active Substance: HYDROXYCHLOROQUINE
     Dosage: 400 MG, QD
     Route: 065
  379. HYDROXYCHLOROQUINE [Suspect]
     Active Substance: HYDROXYCHLOROQUINE
     Dosage: 400 MG, QD
     Route: 065
  380. HYDROXYCHLOROQUINE [Suspect]
     Active Substance: HYDROXYCHLOROQUINE
     Dosage: 400 MG, QD
     Route: 065
  381. HYDROXYCHLOROQUINE [Suspect]
     Active Substance: HYDROXYCHLOROQUINE
     Route: 048
  382. HYDROXYCHLOROQUINE [Suspect]
     Active Substance: HYDROXYCHLOROQUINE
     Route: 048
  383. HYDROXYCHLOROQUINE [Suspect]
     Active Substance: HYDROXYCHLOROQUINE
     Route: 065
  384. HYDROXYCHLOROQUINE [Suspect]
     Active Substance: HYDROXYCHLOROQUINE
     Route: 005
  385. HYDROXYCHLOROQUINE [Suspect]
     Active Substance: HYDROXYCHLOROQUINE
     Route: 065
  386. HYDROXYCHLOROQUINE [Suspect]
     Active Substance: HYDROXYCHLOROQUINE
     Dosage: 200 MG, QD
     Route: 065
  387. HYDROXYCHLOROQUINE SULFATE [Suspect]
     Active Substance: HYDROXYCHLOROQUINE SULFATE
     Indication: Rheumatoid arthritis
     Route: 048
  388. HYDROXYCHLOROQUINE SULFATE [Suspect]
     Active Substance: HYDROXYCHLOROQUINE SULFATE
     Indication: Systemic lupus erythematosus
     Dosage: 400 MG, QD
     Route: 048
  389. HYDROXYCHLOROQUINE SULFATE [Suspect]
     Active Substance: HYDROXYCHLOROQUINE SULFATE
     Route: 048
  390. HYDROXYCHLOROQUINE SULFATE [Suspect]
     Active Substance: HYDROXYCHLOROQUINE SULFATE
     Dosage: 400 MG, QD
     Route: 048
  391. HYDROXYCHLOROQUINE SULFATE [Suspect]
     Active Substance: HYDROXYCHLOROQUINE SULFATE
     Route: 065
  392. HYDROXYCHLOROQUINE SULFATE [Suspect]
     Active Substance: HYDROXYCHLOROQUINE SULFATE
     Dosage: 40 MG, QD
     Route: 065
  393. HYDROXYCHLOROQUINE SULFATE [Suspect]
     Active Substance: HYDROXYCHLOROQUINE SULFATE
     Route: 048
  394. HYDROXYCHLOROQUINE SULFATE [Suspect]
     Active Substance: HYDROXYCHLOROQUINE SULFATE
     Dosage: 4000 MG, QD
     Route: 058
  395. HYDROXYCHLOROQUINE SULFATE [Suspect]
     Active Substance: HYDROXYCHLOROQUINE SULFATE
     Route: 065
  396. HYDROXYCHLOROQUINE SULFATE [Suspect]
     Active Substance: HYDROXYCHLOROQUINE SULFATE
     Dosage: 400 MG, QD
     Route: 048
  397. HYDROXYCHLOROQUINE SULFATE [Suspect]
     Active Substance: HYDROXYCHLOROQUINE SULFATE
     Route: 058
  398. HYDROXYCHLOROQUINE SULFATE [Suspect]
     Active Substance: HYDROXYCHLOROQUINE SULFATE
     Route: 058
  399. HYDROXYCHLOROQUINE SULFATE [Suspect]
     Active Substance: HYDROXYCHLOROQUINE SULFATE
     Route: 016
  400. HYDROXYCHLOROQUINE SULFATE [Suspect]
     Active Substance: HYDROXYCHLOROQUINE SULFATE
     Route: 058
  401. HYDROXYCHLOROQUINE SULFATE [Suspect]
     Active Substance: HYDROXYCHLOROQUINE SULFATE
     Route: 065
  402. HYDROXYCHLOROQUINE SULFATE [Suspect]
     Active Substance: HYDROXYCHLOROQUINE SULFATE
     Route: 048
  403. HYDROXYCHLOROQUINE SULFATE [Suspect]
     Active Substance: HYDROXYCHLOROQUINE SULFATE
     Route: 066
  404. HYDROXYCHLOROQUINE SULFATE [Suspect]
     Active Substance: HYDROXYCHLOROQUINE SULFATE
     Dosage: 40 MG, QD
     Route: 065
  405. HYDROXYCHLOROQUINE SULFATE [Suspect]
     Active Substance: HYDROXYCHLOROQUINE SULFATE
     Dosage: 400 MG, QD
     Route: 065
  406. HYDROXYCHLOROQUINE SULFATE [Suspect]
     Active Substance: HYDROXYCHLOROQUINE SULFATE
     Route: 065
  407. HYDROXYCHLOROQUINE SULFATE [Suspect]
     Active Substance: HYDROXYCHLOROQUINE SULFATE
     Route: 065
  408. HYDROXYCHLOROQUINE SULFATE [Suspect]
     Active Substance: HYDROXYCHLOROQUINE SULFATE
     Route: 048
  409. HYDROXYCHLOROQUINE SULFATE [Suspect]
     Active Substance: HYDROXYCHLOROQUINE SULFATE
     Dosage: 40 MG, QD
     Route: 048
  410. HYDROXYCHLOROQUINE SULFATE [Suspect]
     Active Substance: HYDROXYCHLOROQUINE SULFATE
     Route: 048
  411. HYDROXYCHLOROQUINE SULFATE [Suspect]
     Active Substance: HYDROXYCHLOROQUINE SULFATE
     Route: 048
  412. HYDROXYCHLOROQUINE SULFATE [Suspect]
     Active Substance: HYDROXYCHLOROQUINE SULFATE
     Dosage: 400 MG, QD
     Route: 048
  413. HYDROXYCHLOROQUINE SULFATE [Suspect]
     Active Substance: HYDROXYCHLOROQUINE SULFATE
     Route: 065
  414. HYDROXYCHLOROQUINE SULFATE [Suspect]
     Active Substance: HYDROXYCHLOROQUINE SULFATE
     Dosage: 4000 MG, QD
     Route: 058
  415. HYDROXYCHLOROQUINE SULFATE [Suspect]
     Active Substance: HYDROXYCHLOROQUINE SULFATE
     Route: 065
  416. ISOPROPYL ALCOHOL [Suspect]
     Active Substance: ISOPROPYL ALCOHOL
     Indication: Product used for unknown indication
     Route: 065
  417. ISOPROPYL ALCOHOL [Suspect]
     Active Substance: ISOPROPYL ALCOHOL
     Route: 065
  418. CETIRIZINE HYDROCHLORIDE [Suspect]
     Active Substance: CETIRIZINE HYDROCHLORIDE
     Indication: Rheumatoid arthritis
     Route: 065
  419. CETIRIZINE HYDROCHLORIDE [Suspect]
     Active Substance: CETIRIZINE HYDROCHLORIDE
     Route: 065
  420. CETIRIZINE HYDROCHLORIDE [Suspect]
     Active Substance: CETIRIZINE HYDROCHLORIDE
     Route: 065
  421. CETIRIZINE HYDROCHLORIDE [Suspect]
     Active Substance: CETIRIZINE HYDROCHLORIDE
     Dosage: 10 MG, QD
     Route: 048
  422. CETIRIZINE HYDROCHLORIDE [Suspect]
     Active Substance: CETIRIZINE HYDROCHLORIDE
     Route: 048
  423. CETIRIZINE HYDROCHLORIDE [Suspect]
     Active Substance: CETIRIZINE HYDROCHLORIDE
     Route: 065
  424. CETIRIZINE HYDROCHLORIDE [Suspect]
     Active Substance: CETIRIZINE HYDROCHLORIDE
     Route: 048
  425. CETIRIZINE HYDROCHLORIDE [Suspect]
     Active Substance: CETIRIZINE HYDROCHLORIDE
     Route: 065
  426. CETIRIZINE HYDROCHLORIDE [Suspect]
     Active Substance: CETIRIZINE HYDROCHLORIDE
     Route: 065
  427. CETIRIZINE HYDROCHLORIDE [Suspect]
     Active Substance: CETIRIZINE HYDROCHLORIDE
     Route: 065
  428. CETIRIZINE HYDROCHLORIDE [Suspect]
     Active Substance: CETIRIZINE HYDROCHLORIDE
     Route: 065
  429. CETIRIZINE HYDROCHLORIDE [Suspect]
     Active Substance: CETIRIZINE HYDROCHLORIDE
     Route: 065
  430. CETIRIZINE HYDROCHLORIDE [Suspect]
     Active Substance: CETIRIZINE HYDROCHLORIDE
     Dosage: 10 MG, QD
     Route: 065
  431. CETIRIZINE HYDROCHLORIDE [Suspect]
     Active Substance: CETIRIZINE HYDROCHLORIDE
     Dosage: 10 MG, QD
     Route: 065
  432. CETIRIZINE HYDROCHLORIDE [Suspect]
     Active Substance: CETIRIZINE HYDROCHLORIDE
     Route: 065
  433. CETIRIZINE HYDROCHLORIDE [Suspect]
     Active Substance: CETIRIZINE HYDROCHLORIDE
     Route: 065
  434. CETIRIZINE HYDROCHLORIDE [Suspect]
     Active Substance: CETIRIZINE HYDROCHLORIDE
     Dosage: 10 MG, QD
     Route: 065
  435. CETIRIZINE HYDROCHLORIDE [Suspect]
     Active Substance: CETIRIZINE HYDROCHLORIDE
     Route: 065
  436. CETIRIZINE HYDROCHLORIDE [Suspect]
     Active Substance: CETIRIZINE HYDROCHLORIDE
     Dosage: UNK, QD
     Route: 065
  437. CETIRIZINE HYDROCHLORIDE [Suspect]
     Active Substance: CETIRIZINE HYDROCHLORIDE
     Route: 065
  438. CETIRIZINE HYDROCHLORIDE [Suspect]
     Active Substance: CETIRIZINE HYDROCHLORIDE
     Route: 065
  439. FLUMETHASONE PIVALATE [Suspect]
     Active Substance: FLUMETHASONE PIVALATE
     Indication: Rheumatoid arthritis
     Route: 003
  440. FLUMETHASONE PIVALATE [Suspect]
     Active Substance: FLUMETHASONE PIVALATE
     Route: 065
  441. FLUMETHASONE PIVALATE [Suspect]
     Active Substance: FLUMETHASONE PIVALATE
     Route: 058
  442. SIMPONI [Suspect]
     Active Substance: GOLIMUMAB
     Indication: Rheumatoid arthritis
     Route: 058
  443. SIMPONI [Suspect]
     Active Substance: GOLIMUMAB
     Indication: Psoriatic arthropathy
     Route: 065
  444. SIMPONI [Suspect]
     Active Substance: GOLIMUMAB
     Route: 058
  445. SIMPONI [Suspect]
     Active Substance: GOLIMUMAB
     Route: 058
  446. SIMPONI [Suspect]
     Active Substance: GOLIMUMAB
     Route: 058
  447. SIMPONI [Suspect]
     Active Substance: GOLIMUMAB
     Route: 052
  448. SIMPONI [Suspect]
     Active Substance: GOLIMUMAB
     Route: 042
  449. SIMPONI [Suspect]
     Active Substance: GOLIMUMAB
     Route: 065
  450. SIMPONI [Suspect]
     Active Substance: GOLIMUMAB
     Route: 042
  451. ORENCIA [Suspect]
     Active Substance: ABATACEPT
     Indication: Rheumatoid arthritis
     Dosage: 125 MG, QW
     Route: 058
  452. ORENCIA [Suspect]
     Active Substance: ABATACEPT
     Indication: Psoriatic arthropathy
     Route: 058
  453. ORENCIA [Suspect]
     Active Substance: ABATACEPT
     Route: 058
  454. ORENCIA [Suspect]
     Active Substance: ABATACEPT
     Dosage: 17.857 MG, QD
     Route: 058
  455. ORENCIA [Suspect]
     Active Substance: ABATACEPT
     Route: 058
  456. ORENCIA [Suspect]
     Active Substance: ABATACEPT
     Route: 042
  457. ORENCIA [Suspect]
     Active Substance: ABATACEPT
     Route: 065
  458. ORENCIA [Suspect]
     Active Substance: ABATACEPT
     Route: 042
  459. ORENCIA [Suspect]
     Active Substance: ABATACEPT
     Route: 042
  460. ORENCIA [Suspect]
     Active Substance: ABATACEPT
     Dosage: 3.0 MG, BID
     Route: 048
  461. ORENCIA [Suspect]
     Active Substance: ABATACEPT
     Route: 058
  462. ORENCIA [Suspect]
     Active Substance: ABATACEPT
     Route: 042
  463. ORENCIA [Suspect]
     Active Substance: ABATACEPT
     Route: 015
  464. ORENCIA [Suspect]
     Active Substance: ABATACEPT
     Route: 058
  465. ORENCIA [Suspect]
     Active Substance: ABATACEPT
     Dosage: 125 MG, QW
     Route: 058
  466. ORENCIA [Suspect]
     Active Substance: ABATACEPT
     Route: 065
  467. ORENCIA [Suspect]
     Active Substance: ABATACEPT
     Dosage: 18 MG, QD
     Route: 058
  468. ORENCIA [Suspect]
     Active Substance: ABATACEPT
     Dosage: 17.875 MG, QD
     Route: 058
  469. ORENCIA [Suspect]
     Active Substance: ABATACEPT
     Dosage: 120 MG, QW
     Route: 058
  470. ORENCIA [Suspect]
     Active Substance: ABATACEPT
     Dosage: 125 MG, QW
     Route: 042
  471. ORENCIA [Suspect]
     Active Substance: ABATACEPT
     Dosage: 17.857 MG, QD
     Route: 042
  472. ORENCIA [Suspect]
     Active Substance: ABATACEPT
     Route: 041
  473. ORENCIA [Suspect]
     Active Substance: ABATACEPT
     Route: 058
  474. ORENCIA [Suspect]
     Active Substance: ABATACEPT
     Route: 041
  475. ORENCIA [Suspect]
     Active Substance: ABATACEPT
     Route: 058
  476. ORENCIA [Suspect]
     Active Substance: ABATACEPT
     Route: 058
  477. ORENCIA [Suspect]
     Active Substance: ABATACEPT
     Route: 065
  478. ORENCIA [Suspect]
     Active Substance: ABATACEPT
     Route: 041
  479. ORENCIA [Suspect]
     Active Substance: ABATACEPT
     Route: 048
  480. ORENCIA [Suspect]
     Active Substance: ABATACEPT
     Route: 042
  481. CHLORHEXIDINE GLUCONATE [Suspect]
     Active Substance: CHLORHEXIDINE GLUCONATE
     Indication: Product used for unknown indication
     Route: 048
  482. CHLORHEXIDINE GLUCONATE [Suspect]
     Active Substance: CHLORHEXIDINE GLUCONATE
     Route: 002
  483. CHLORHEXIDINE GLUCONATE [Suspect]
     Active Substance: CHLORHEXIDINE GLUCONATE
     Route: 065
  484. CHLORHEXIDINE GLUCONATE [Suspect]
     Active Substance: CHLORHEXIDINE GLUCONATE
     Route: 065
  485. CHLORHEXIDINE GLUCONATE [Suspect]
     Active Substance: CHLORHEXIDINE GLUCONATE
     Route: 065
  486. CHLORHEXIDINE GLUCONATE [Suspect]
     Active Substance: CHLORHEXIDINE GLUCONATE
     Route: 065
  487. OXYCODONE TEREPHTHALATE [Suspect]
     Active Substance: OXYCODONE TEREPHTHALATE
     Indication: Product used for unknown indication
     Route: 065
  488. OXYCODONE TEREPHTHALATE [Suspect]
     Active Substance: OXYCODONE TEREPHTHALATE
     Route: 016
  489. PREDNISONE [Suspect]
     Active Substance: PREDNISONE
     Indication: Rheumatoid arthritis
     Dosage: 7.5 MG, QD
     Route: 048
  490. PREDNISONE [Suspect]
     Active Substance: PREDNISONE
     Indication: Psoriatic arthropathy
     Route: 048
  491. PREDNISONE [Suspect]
     Active Substance: PREDNISONE
     Indication: Systemic lupus erythematosus
     Route: 065
  492. PREDNISONE [Suspect]
     Active Substance: PREDNISONE
     Indication: Synovitis
     Route: 065
  493. PREDNISONE [Suspect]
     Active Substance: PREDNISONE
     Indication: Pemphigus
     Route: 048
  494. PREDNISONE [Suspect]
     Active Substance: PREDNISONE
     Indication: Condition aggravated
     Route: 048
  495. PREDNISONE [Suspect]
     Active Substance: PREDNISONE
     Route: 065
  496. PREDNISONE [Suspect]
     Active Substance: PREDNISONE
     Route: 048
  497. PREDNISONE [Suspect]
     Active Substance: PREDNISONE
     Route: 065
  498. PREDNISONE [Suspect]
     Active Substance: PREDNISONE
     Route: 065
  499. PREDNISONE [Suspect]
     Active Substance: PREDNISONE
     Route: 048
  500. PREDNISONE [Suspect]
     Active Substance: PREDNISONE
     Route: 042
  501. PSEUDOEPHEDRINE HYDROCHLORIDE [Suspect]
     Active Substance: PSEUDOEPHEDRINE HYDROCHLORIDE
     Indication: Rheumatoid arthritis
     Route: 065
  502. PSEUDOEPHEDRINE HYDROCHLORIDE [Suspect]
     Active Substance: PSEUDOEPHEDRINE HYDROCHLORIDE
     Route: 065
  503. PSEUDOEPHEDRINE HYDROCHLORIDE [Suspect]
     Active Substance: PSEUDOEPHEDRINE HYDROCHLORIDE
     Route: 065
  504. REMICADE [Suspect]
     Active Substance: INFLIXIMAB
     Indication: Rheumatoid arthritis
     Route: 042
  505. REMICADE [Suspect]
     Active Substance: INFLIXIMAB
     Route: 042
  506. REMICADE [Suspect]
     Active Substance: INFLIXIMAB
     Route: 065
  507. FLUMETHASONE PIVALATE [Suspect]
     Active Substance: FLUMETHASONE PIVALATE
     Indication: Rheumatoid arthritis
     Route: 058
  508. FLUMETHASONE PIVALATE [Suspect]
     Active Substance: FLUMETHASONE PIVALATE
     Route: 065
  509. SULFAMETHOXAZOLE [Suspect]
     Active Substance: SULFAMETHOXAZOLE
     Indication: Product used for unknown indication
     Route: 065
  510. HYDROXYCHLOROQUINE SULFATE [Suspect]
     Active Substance: HYDROXYCHLOROQUINE SULFATE
     Indication: Rheumatoid arthritis
     Route: 065
  511. SULFASALAZINE [Suspect]
     Active Substance: SULFASALAZINE
     Indication: Rheumatoid arthritis
     Dosage: 500 MG, QD
     Route: 048
  512. SULFASALAZINE [Suspect]
     Active Substance: SULFASALAZINE
     Dosage: 1000 MG, QD
     Route: 048
  513. SULFASALAZINE [Suspect]
     Active Substance: SULFASALAZINE
     Dosage: 1.0 G, QD
     Route: 065
  514. SULFASALAZINE [Suspect]
     Active Substance: SULFASALAZINE
     Dosage: 1 G, BID
     Route: 065
  515. SULFASALAZINE [Suspect]
     Active Substance: SULFASALAZINE
     Dosage: 1.0 G, QD
     Route: 048
  516. SULFASALAZINE [Suspect]
     Active Substance: SULFASALAZINE
     Dosage: 1000 MG, BID
     Route: 048
  517. SULFASALAZINE [Suspect]
     Active Substance: SULFASALAZINE
     Dosage: 500 MG, BID
     Route: 048
  518. SULFASALAZINE [Suspect]
     Active Substance: SULFASALAZINE
     Dosage: 1 G, BID
     Route: 065
  519. SULFASALAZINE [Suspect]
     Active Substance: SULFASALAZINE
     Route: 048
  520. SULFASALAZINE [Suspect]
     Active Substance: SULFASALAZINE
     Route: 065
  521. SULFASALAZINE [Suspect]
     Active Substance: SULFASALAZINE
     Route: 065
  522. SULFASALAZINE [Suspect]
     Active Substance: SULFASALAZINE
     Dosage: 1 G, BID
     Route: 048
  523. SULFASALAZINE [Suspect]
     Active Substance: SULFASALAZINE
     Route: 048
  524. SULFASALAZINE [Suspect]
     Active Substance: SULFASALAZINE
     Route: 048
  525. SULFASALAZINE [Suspect]
     Active Substance: SULFASALAZINE
     Route: 048
  526. SULFASALAZINE [Suspect]
     Active Substance: SULFASALAZINE
     Dosage: 1 DOSAGE FORM, QD
     Route: 048
  527. SULFASALAZINE [Suspect]
     Active Substance: SULFASALAZINE
     Dosage: 2000 MG, QD
     Route: 048
  528. SULFASALAZINE [Suspect]
     Active Substance: SULFASALAZINE
     Route: 048
  529. SULFASALAZINE [Suspect]
     Active Substance: SULFASALAZINE
     Route: 048
  530. SULFASALAZINE [Suspect]
     Active Substance: SULFASALAZINE
     Dosage: 500 MG, QD
     Route: 048
  531. SULFASALAZINE [Suspect]
     Active Substance: SULFASALAZINE
     Dosage: UNK, QD
     Route: 065
  532. SULFASALAZINE [Suspect]
     Active Substance: SULFASALAZINE
     Dosage: 4000 MG, QD
     Route: 048
  533. SULFASALAZINE [Suspect]
     Active Substance: SULFASALAZINE
     Route: 048
  534. SULFASALAZINE [Suspect]
     Active Substance: SULFASALAZINE
     Route: 058
  535. SULFASALAZINE [Suspect]
     Active Substance: SULFASALAZINE
     Route: 048
  536. SULFASALAZINE [Suspect]
     Active Substance: SULFASALAZINE
     Dosage: 1000 MG, QD
     Route: 048
  537. SULFASALAZINE [Suspect]
     Active Substance: SULFASALAZINE
     Route: 058
  538. SULFASALAZINE [Suspect]
     Active Substance: SULFASALAZINE
     Route: 048
  539. SULFASALAZINE [Suspect]
     Active Substance: SULFASALAZINE
     Route: 048
  540. SULFASALAZINE [Suspect]
     Active Substance: SULFASALAZINE
     Route: 065
  541. SULFASALAZINE [Suspect]
     Active Substance: SULFASALAZINE
     Dosage: 1 G, QD
     Route: 065
  542. SULFASALAZINE [Suspect]
     Active Substance: SULFASALAZINE
     Dosage: 1 G, BID
     Route: 065
  543. SULFASALAZINE [Suspect]
     Active Substance: SULFASALAZINE
     Route: 048
  544. SULFASALAZINE [Suspect]
     Active Substance: SULFASALAZINE
     Route: 048
  545. SULFASALAZINE [Suspect]
     Active Substance: SULFASALAZINE
     Route: 065
  546. SULFASALAZINE [Suspect]
     Active Substance: SULFASALAZINE
     Dosage: UNK, QD
     Route: 065
  547. SULFASALAZINE [Suspect]
     Active Substance: SULFASALAZINE
     Route: 048
  548. SULFASALAZINE [Suspect]
     Active Substance: SULFASALAZINE
     Route: 048
  549. SULFASALAZINE [Suspect]
     Active Substance: SULFASALAZINE
     Route: 065
  550. SULFASALAZINE [Suspect]
     Active Substance: SULFASALAZINE
     Route: 048
  551. SULFASALAZINE [Suspect]
     Active Substance: SULFASALAZINE
     Route: 065
  552. SULFASALAZINE [Suspect]
     Active Substance: SULFASALAZINE
     Route: 065
  553. SULFASALAZINE [Suspect]
     Active Substance: SULFASALAZINE
     Dosage: 1 DOSAGE FORM, QD
     Route: 048
  554. RAMIPRIL [Suspect]
     Active Substance: RAMIPRIL
     Indication: Product used for unknown indication
     Route: 065
  555. XELJANZ [Suspect]
     Active Substance: TOFACITINIB CITRATE
     Indication: Rheumatoid arthritis
     Route: 048
  556. XELJANZ [Suspect]
     Active Substance: TOFACITINIB CITRATE
     Dosage: 5.0 MG, BID
     Route: 065
  557. XELJANZ [Suspect]
     Active Substance: TOFACITINIB CITRATE
     Dosage: 5.0 MG, BID
     Route: 065
  558. XELJANZ [Suspect]
     Active Substance: TOFACITINIB CITRATE
     Dosage: 5.0 MG, BID
     Route: 065
  559. XELJANZ [Suspect]
     Active Substance: TOFACITINIB CITRATE
     Dosage: 10 MG, QD
     Route: 065
  560. XELJANZ [Suspect]
     Active Substance: TOFACITINIB CITRATE
     Route: 065
  561. XELJANZ [Suspect]
     Active Substance: TOFACITINIB CITRATE
     Route: 065
  562. XELJANZ [Suspect]
     Active Substance: TOFACITINIB CITRATE
     Dosage: 5 MG, BID
     Route: 065
  563. XELJANZ [Suspect]
     Active Substance: TOFACITINIB CITRATE
     Route: 048
  564. XELJANZ [Suspect]
     Active Substance: TOFACITINIB CITRATE
     Route: 048
  565. XELJANZ [Suspect]
     Active Substance: TOFACITINIB CITRATE
     Route: 065
  566. XELJANZ [Suspect]
     Active Substance: TOFACITINIB CITRATE
     Route: 065
  567. XELJANZ [Suspect]
     Active Substance: TOFACITINIB CITRATE
     Route: 065
  568. BORAGE OIL [Suspect]
     Active Substance: BORAGE OIL
     Indication: Product used for unknown indication
     Route: 065
  569. NAPROXEN SODIUM [Suspect]
     Active Substance: NAPROXEN SODIUM
     Indication: Rheumatoid arthritis
     Route: 065
  570. NAPROXEN SODIUM [Suspect]
     Active Substance: NAPROXEN SODIUM
     Dosage: 500 MG, BID
     Route: 065
  571. NAPROXEN SODIUM [Suspect]
     Active Substance: NAPROXEN SODIUM
     Route: 065
  572. SULFAMETHOXAZOLE AND TRIMETHOPRIM [Suspect]
     Active Substance: SULFAMETHOXAZOLE\TRIMETHOPRIM
     Indication: Product used for unknown indication
     Route: 065
  573. SULFAMETHOXAZOLE AND TRIMETHOPRIM [Suspect]
     Active Substance: SULFAMETHOXAZOLE\TRIMETHOPRIM
     Route: 065
  574. ASACOL [Suspect]
     Active Substance: MESALAMINE
     Indication: Product used for unknown indication
     Route: 065
  575. LYRICA [Suspect]
     Active Substance: PREGABALIN
     Indication: Product used for unknown indication
     Route: 065
  576. OTEZLA [Suspect]
     Active Substance: APREMILAST
     Indication: Product used for unknown indication
     Dosage: 3 MG, BID
     Route: 048
  577. OTEZLA [Suspect]
     Active Substance: APREMILAST
     Dosage: 3 MG, BID
     Route: 065
  578. OTEZLA [Suspect]
     Active Substance: APREMILAST
     Route: 048
  579. OTEZLA [Suspect]
     Active Substance: APREMILAST
     Route: 048
  580. OTEZLA [Suspect]
     Active Substance: APREMILAST
     Route: 065
  581. CETIRIZINE HYDROCHLORIDE [Suspect]
     Active Substance: CETIRIZINE HYDROCHLORIDE
     Indication: Rheumatoid arthritis
     Route: 065
  582. CETIRIZINE HYDROCHLORIDE [Suspect]
     Active Substance: CETIRIZINE HYDROCHLORIDE
     Indication: Urticaria
     Route: 048
  583. CETIRIZINE HYDROCHLORIDE [Suspect]
     Active Substance: CETIRIZINE HYDROCHLORIDE
     Route: 065
  584. CETIRIZINE HYDROCHLORIDE [Suspect]
     Active Substance: CETIRIZINE HYDROCHLORIDE
     Route: 065
  585. CETIRIZINE HYDROCHLORIDE [Suspect]
     Active Substance: CETIRIZINE HYDROCHLORIDE
     Route: 005
  586. CETIRIZINE HYDROCHLORIDE [Suspect]
     Active Substance: CETIRIZINE HYDROCHLORIDE
     Route: 016
  587. CETIRIZINE HYDROCHLORIDE\PSEUDOEPHEDRINE HYDROCHLORIDE [Suspect]
     Active Substance: CETIRIZINE HYDROCHLORIDE\PSEUDOEPHEDRINE HYDROCHLORIDE
     Indication: Rheumatoid arthritis
     Route: 065
  588. CETIRIZINE HYDROCHLORIDE\PSEUDOEPHEDRINE HYDROCHLORIDE [Suspect]
     Active Substance: CETIRIZINE HYDROCHLORIDE\PSEUDOEPHEDRINE HYDROCHLORIDE
     Route: 065
  589. CETIRIZINE HYDROCHLORIDE\PSEUDOEPHEDRINE HYDROCHLORIDE [Suspect]
     Active Substance: CETIRIZINE HYDROCHLORIDE\PSEUDOEPHEDRINE HYDROCHLORIDE
     Route: 048
  590. CETIRIZINE HYDROCHLORIDE\PSEUDOEPHEDRINE HYDROCHLORIDE [Suspect]
     Active Substance: CETIRIZINE HYDROCHLORIDE\PSEUDOEPHEDRINE HYDROCHLORIDE
     Route: 065
  591. CETIRIZINE HYDROCHLORIDE\PSEUDOEPHEDRINE HYDROCHLORIDE [Suspect]
     Active Substance: CETIRIZINE HYDROCHLORIDE\PSEUDOEPHEDRINE HYDROCHLORIDE
     Route: 065
  592. STELARA [Suspect]
     Active Substance: USTEKINUMAB
     Indication: Rheumatoid arthritis
     Route: 058
  593. STELARA [Suspect]
     Active Substance: USTEKINUMAB
     Route: 042
  594. STELARA [Suspect]
     Active Substance: USTEKINUMAB
     Route: 058
  595. STELARA [Suspect]
     Active Substance: USTEKINUMAB
     Route: 042
  596. STELARA [Suspect]
     Active Substance: USTEKINUMAB
     Route: 058
  597. PREDNISONE [Suspect]
     Active Substance: PREDNISONE
     Indication: Rheumatoid arthritis
     Route: 048
  598. PREDNISONE [Suspect]
     Active Substance: PREDNISONE
     Route: 048
  599. CETIRIZINE HYDROCHLORIDE [Suspect]
     Active Substance: CETIRIZINE HYDROCHLORIDE
     Indication: Rheumatoid arthritis
     Dosage: 10 MG, QD
     Route: 048
  600. CETIRIZINE HYDROCHLORIDE [Suspect]
     Active Substance: CETIRIZINE HYDROCHLORIDE
     Route: 065
  601. CETIRIZINE HYDROCHLORIDE [Suspect]
     Active Substance: CETIRIZINE HYDROCHLORIDE
     Route: 048
  602. CETIRIZINE HYDROCHLORIDE [Suspect]
     Active Substance: CETIRIZINE HYDROCHLORIDE
     Route: 048
  603. CETIRIZINE HYDROCHLORIDE [Suspect]
     Active Substance: CETIRIZINE HYDROCHLORIDE
     Route: 065
  604. CETIRIZINE HYDROCHLORIDE [Suspect]
     Active Substance: CETIRIZINE HYDROCHLORIDE
     Dosage: 10 MG, QD
     Route: 048
  605. CETIRIZINE HYDROCHLORIDE [Suspect]
     Active Substance: CETIRIZINE HYDROCHLORIDE
     Dosage: 10 MG, QD
     Route: 048
  606. CETIRIZINE HYDROCHLORIDE [Suspect]
     Active Substance: CETIRIZINE HYDROCHLORIDE
     Route: 065
  607. ISOPROPANOLAMINE [Suspect]
     Active Substance: ISOPROPANOLAMINE
     Indication: Product used for unknown indication
     Route: 061
  608. CETIRIZINE HYDROCHLORIDE [Suspect]
     Active Substance: CETIRIZINE HYDROCHLORIDE
     Indication: Rheumatoid arthritis
     Route: 065
  609. CETIRIZINE HYDROCHLORIDE [Suspect]
     Active Substance: CETIRIZINE HYDROCHLORIDE
     Route: 048
  610. CETIRIZINE HYDROCHLORIDE [Suspect]
     Active Substance: CETIRIZINE HYDROCHLORIDE
     Route: 065
  611. CETIRIZINE HYDROCHLORIDE [Suspect]
     Active Substance: CETIRIZINE HYDROCHLORIDE
     Dosage: 10 MG, QD
     Route: 048
  612. SIMPONI [Suspect]
     Active Substance: GOLIMUMAB
     Indication: Rheumatoid arthritis
     Route: 058
  613. DICLOFENAC SODIUM [Suspect]
     Active Substance: DICLOFENAC SODIUM
     Indication: Product used for unknown indication
     Route: 065
  614. CETIRIZINE HYDROCHLORIDE\PSEUDOEPHEDRINE HYDROCHLORIDE [Suspect]
     Active Substance: CETIRIZINE HYDROCHLORIDE\PSEUDOEPHEDRINE HYDROCHLORIDE
     Indication: Rheumatoid arthritis
     Route: 048
  615. CETIRIZINE HYDROCHLORIDE\PSEUDOEPHEDRINE HYDROCHLORIDE [Suspect]
     Active Substance: CETIRIZINE HYDROCHLORIDE\PSEUDOEPHEDRINE HYDROCHLORIDE
     Route: 048
  616. CETIRIZINE HYDROCHLORIDE\PSEUDOEPHEDRINE HYDROCHLORIDE [Suspect]
     Active Substance: CETIRIZINE HYDROCHLORIDE\PSEUDOEPHEDRINE HYDROCHLORIDE
     Route: 048
  617. CETIRIZINE HYDROCHLORIDE\PSEUDOEPHEDRINE HYDROCHLORIDE [Suspect]
     Active Substance: CETIRIZINE HYDROCHLORIDE\PSEUDOEPHEDRINE HYDROCHLORIDE
     Route: 048
  618. TOCILIZUMAB [Suspect]
     Active Substance: TOCILIZUMAB
     Indication: Rheumatoid arthritis
     Route: 065
  619. TOCILIZUMAB [Suspect]
     Active Substance: TOCILIZUMAB
     Route: 058
  620. TOFACITINIB CITRATE [Suspect]
     Active Substance: TOFACITINIB CITRATE
     Indication: Rheumatoid arthritis
     Dosage: 5 MG, BID
     Route: 065
  621. TOFACITINIB CITRATE [Suspect]
     Active Substance: TOFACITINIB CITRATE
     Indication: Psoriatic arthropathy
     Route: 048
  622. TOFACITINIB CITRATE [Suspect]
     Active Substance: TOFACITINIB CITRATE
     Route: 058
  623. TOFACITINIB CITRATE [Suspect]
     Active Substance: TOFACITINIB CITRATE
     Dosage: 5 MG, QW
     Route: 048
  624. TOFACITINIB CITRATE [Suspect]
     Active Substance: TOFACITINIB CITRATE
     Route: 065
  625. TOFACITINIB CITRATE [Suspect]
     Active Substance: TOFACITINIB CITRATE
     Route: 065
  626. TRAMADOL HYDROCHLORIDE [Suspect]
     Active Substance: TRAMADOL HYDROCHLORIDE
     Indication: Product used for unknown indication
     Route: 065
  627. NAPROXEN [Suspect]
     Active Substance: NAPROXEN
     Indication: Rheumatoid arthritis
     Route: 065
  628. USTEKINUMAB [Suspect]
     Active Substance: USTEKINUMAB
     Indication: Psoriatic arthropathy
     Route: 058
  629. USTEKINUMAB [Suspect]
     Active Substance: USTEKINUMAB
     Route: 042
  630. MINOCYCLINE HYDROCHLORIDE [Suspect]
     Active Substance: MINOCYCLINE HYDROCHLORIDE
     Indication: Product used for unknown indication
     Route: 065
  631. MINOCYCLINE HYDROCHLORIDE [Suspect]
     Active Substance: MINOCYCLINE HYDROCHLORIDE
     Route: 065
  632. PLAQUENIL [Suspect]
     Active Substance: HYDROXYCHLOROQUINE SULFATE
     Indication: Rheumatoid arthritis
     Route: 048
  633. NEOMYCIN [Suspect]
     Active Substance: NEOMYCIN
     Indication: Product used for unknown indication
     Route: 065
  634. PSEUDOEPHEDRINE\TRIPROLIDINE [Suspect]
     Active Substance: PSEUDOEPHEDRINE\TRIPROLIDINE
     Indication: Rheumatoid arthritis
     Route: 065
  635. PSEUDOEPHEDRINE\TRIPROLIDINE [Suspect]
     Active Substance: PSEUDOEPHEDRINE\TRIPROLIDINE
     Route: 065
  636. PARA-AMINOSALICYLIC ACID [Suspect]
     Active Substance: AMINOSALICYLIC ACID
     Indication: Product used for unknown indication
     Route: 065
  637. IBUPROFEN [Suspect]
     Active Substance: IBUPROFEN
     Indication: Product used for unknown indication
     Route: 065
  638. VITAMIN C [Suspect]
     Active Substance: ASCORBIC ACID
     Indication: Product used for unknown indication
     Route: 065
  639. VITAMIN C [Suspect]
     Active Substance: ASCORBIC ACID
     Route: 016
  640. VITAMIN C [Suspect]
     Active Substance: ASCORBIC ACID
     Route: 065
  641. VITAMIN C [Suspect]
     Active Substance: ASCORBIC ACID
     Route: 065
  642. DIETARY SUPPLEMENT\HERBALS [Suspect]
     Active Substance: DIETARY SUPPLEMENT\HERBALS
     Indication: Product used for unknown indication
     Route: 065
  643. SULFASALAZINE [Suspect]
     Active Substance: SULFASALAZINE
     Indication: Rheumatoid arthritis
     Route: 048
  644. SULFASALAZINE [Suspect]
     Active Substance: SULFASALAZINE
     Route: 048
  645. SULFASALAZINE [Suspect]
     Active Substance: SULFASALAZINE
     Route: 065
  646. SULFASALAZINE [Suspect]
     Active Substance: SULFASALAZINE
     Dosage: 1 G, QD
     Route: 065
  647. SULFASALAZINE [Suspect]
     Active Substance: SULFASALAZINE
     Route: 048
  648. SULFASALAZINE [Suspect]
     Active Substance: SULFASALAZINE
     Dosage: 1 G, BID
     Route: 048
  649. SULFASALAZINE [Suspect]
     Active Substance: SULFASALAZINE
     Route: 048
  650. SULFASALAZINE [Suspect]
     Active Substance: SULFASALAZINE
     Dosage: 1 G, BID
     Route: 048
  651. SOLU-MEDROL [Suspect]
     Active Substance: METHYLPREDNISOLONE SODIUM SUCCINATE
     Indication: Product used for unknown indication
     Route: 065
  652. MINERALS\VITAMINS [Suspect]
     Active Substance: MINERALS\VITAMINS
     Indication: Product used for unknown indication
     Route: 065
  653. CORTISONE [Suspect]
     Active Substance: CORTISONE
     Indication: Rheumatoid arthritis
     Route: 065
  654. CORTISONE [Suspect]
     Active Substance: CORTISONE
     Route: 065
  655. CORTISONE [Suspect]
     Active Substance: CORTISONE
     Route: 003
  656. CORTISONE [Suspect]
     Active Substance: CORTISONE
     Route: 058
  657. CORTISONE [Suspect]
     Active Substance: CORTISONE
     Route: 048
  658. CORTISONE [Suspect]
     Active Substance: CORTISONE
     Route: 058
  659. CORTISONE [Suspect]
     Active Substance: CORTISONE
     Route: 065
  660. CORTISONE [Suspect]
     Active Substance: CORTISONE
     Route: 003
  661. CORTISONE [Suspect]
     Active Substance: CORTISONE
     Route: 065
  662. CORTISONE [Suspect]
     Active Substance: CORTISONE
     Route: 065
  663. CORTISONE [Suspect]
     Active Substance: CORTISONE
     Route: 058
  664. CORTISONE [Suspect]
     Active Substance: CORTISONE
     Route: 058
  665. CORTISONE [Suspect]
     Active Substance: CORTISONE
     Route: 065
  666. CORTISONE [Suspect]
     Active Substance: CORTISONE
     Route: 065
  667. CORTISONE [Suspect]
     Active Substance: CORTISONE
     Route: 048
  668. CORTISONE [Suspect]
     Active Substance: CORTISONE
     Route: 065
  669. CORTISONE [Suspect]
     Active Substance: CORTISONE
     Route: 065
  670. CORTISONE [Suspect]
     Active Substance: CORTISONE
     Route: 065
  671. CORTISONE [Suspect]
     Active Substance: CORTISONE
     Route: 065
  672. DICLOFENAC SODIUM [Suspect]
     Active Substance: DICLOFENAC SODIUM
     Indication: Product used for unknown indication
     Route: 065
  673. ETANERCEPT [Suspect]
     Active Substance: ETANERCEPT
     Indication: Rheumatoid arthritis
     Dosage: 50 MG, QW
     Route: 058
  674. ETANERCEPT [Suspect]
     Active Substance: ETANERCEPT
     Route: 058
  675. ETANERCEPT [Suspect]
     Active Substance: ETANERCEPT
     Route: 058
  676. CETRIMIDE [Suspect]
     Active Substance: CETRIMIDE
     Indication: Product used for unknown indication
     Route: 065
  677. DOXYCYCLINE HYCLATE [Suspect]
     Active Substance: DOXYCYCLINE HYCLATE
     Indication: Product used for unknown indication
     Route: 065
  678. SARILUMAB [Suspect]
     Active Substance: SARILUMAB
     Indication: Product used for unknown indication
     Route: 065
  679. VITAMIN B12 [Suspect]
     Active Substance: CYANOCOBALAMIN
     Indication: Product used for unknown indication
     Route: 065
  680. OXYCODONE HYDROCHLORIDE [Suspect]
     Active Substance: OXYCODONE HYDROCHLORIDE
     Indication: Product used for unknown indication
     Route: 065
  681. DESOXIMETASONE [Suspect]
     Active Substance: DESOXIMETASONE
     Indication: Rheumatoid arthritis
     Route: 003
  682. DESOXIMETASONE [Suspect]
     Active Substance: DESOXIMETASONE
     Route: 003
  683. DESOXIMETASONE [Suspect]
     Active Substance: DESOXIMETASONE
     Route: 065
  684. DESOXIMETASONE [Suspect]
     Active Substance: DESOXIMETASONE
     Route: 058
  685. DESOXIMETASONE [Suspect]
     Active Substance: DESOXIMETASONE
     Route: 048
  686. DESOXIMETASONE [Suspect]
     Active Substance: DESOXIMETASONE
     Route: 058
  687. DESOXIMETASONE [Suspect]
     Active Substance: DESOXIMETASONE
     Route: 048
  688. DESOXIMETASONE [Suspect]
     Active Substance: DESOXIMETASONE
     Route: 065
  689. DESOXIMETASONE [Suspect]
     Active Substance: DESOXIMETASONE
     Indication: Rheumatoid arthritis
     Route: 065
  690. DESOXIMETASONE [Suspect]
     Active Substance: DESOXIMETASONE
     Route: 058
  691. DESOXIMETASONE [Suspect]
     Active Substance: DESOXIMETASONE
     Route: 048
  692. DESOXIMETASONE [Suspect]
     Active Substance: DESOXIMETASONE
     Route: 003
  693. QUETIAPINE [Suspect]
     Active Substance: QUETIAPINE
     Indication: Rheumatoid arthritis
     Route: 003
  694. QUETIAPINE [Suspect]
     Active Substance: QUETIAPINE
     Route: 048
  695. INFLIXIMAB [Suspect]
     Active Substance: INFLIXIMAB
     Indication: Rheumatoid arthritis
     Route: 042
  696. INFLIXIMAB [Suspect]
     Active Substance: INFLIXIMAB
     Indication: Psoriatic arthropathy
     Route: 042
  697. INFLIXIMAB [Suspect]
     Active Substance: INFLIXIMAB
     Route: 065
  698. INFLIXIMAB [Suspect]
     Active Substance: INFLIXIMAB
     Route: 042
  699. INFLIXIMAB [Suspect]
     Active Substance: INFLIXIMAB
     Route: 065
  700. VITAMIN D3 [Suspect]
     Active Substance: CHOLECALCIFEROL
     Indication: Rheumatoid arthritis
     Route: 065
  701. VITAMIN D3 [Suspect]
     Active Substance: CHOLECALCIFEROL
     Route: 065
  702. ENTYVIO [Suspect]
     Active Substance: VEDOLIZUMAB
     Indication: Product used for unknown indication
     Route: 065
  703. CHLORHEXIDINE [Suspect]
     Active Substance: CHLORHEXIDINE
     Indication: Product used for unknown indication
     Route: 002
  704. CHLORHEXIDINE [Suspect]
     Active Substance: CHLORHEXIDINE
     Route: 065
  705. CHLORHEXIDINE [Suspect]
     Active Substance: CHLORHEXIDINE
     Route: 065
  706. CHLORHEXIDINE [Suspect]
     Active Substance: CHLORHEXIDINE
     Route: 048
  707. HYDROCORTISONE [Suspect]
     Active Substance: HYDROCORTISONE
     Indication: Rheumatoid arthritis
     Route: 065
  708. PSEUDOEPHEDRINE [Suspect]
     Active Substance: PSEUDOEPHEDRINE
     Indication: Product used for unknown indication
     Route: 065
  709. PSEUDOEPHEDRINE [Suspect]
     Active Substance: PSEUDOEPHEDRINE
     Route: 065
  710. SULFAMETHOXAZOLE\TRIMETHOPRIM [Suspect]
     Active Substance: SULFAMETHOXAZOLE\TRIMETHOPRIM
     Indication: Product used for unknown indication
     Route: 067
  711. PHTHALYLSULFATHIAZOLE [Suspect]
     Active Substance: PHTHALYLSULFATHIAZOLE
     Indication: Rheumatoid arthritis
     Dosage: 2000 MG, QD
     Route: 048
  712. PHTHALYLSULFATHIAZOLE [Suspect]
     Active Substance: PHTHALYLSULFATHIAZOLE
     Route: 048
  713. PHTHALYLSULFATHIAZOLE [Suspect]
     Active Substance: PHTHALYLSULFATHIAZOLE
     Route: 048
  714. PHTHALYLSULFATHIAZOLE [Suspect]
     Active Substance: PHTHALYLSULFATHIAZOLE
     Route: 065
  715. PHTHALYLSULFATHIAZOLE [Suspect]
     Active Substance: PHTHALYLSULFATHIAZOLE
     Dosage: 1000 MG, BID
     Route: 048
  716. PHTHALYLSULFATHIAZOLE [Suspect]
     Active Substance: PHTHALYLSULFATHIAZOLE
     Route: 042
  717. PHTHALYLSULFATHIAZOLE [Suspect]
     Active Substance: PHTHALYLSULFATHIAZOLE
     Dosage: 1000 MG, BID
     Route: 065
  718. PHTHALYLSULFATHIAZOLE [Suspect]
     Active Substance: PHTHALYLSULFATHIAZOLE
     Route: 065
  719. PHTHALYLSULFATHIAZOLE [Suspect]
     Active Substance: PHTHALYLSULFATHIAZOLE
     Route: 016
  720. PHTHALYLSULFATHIAZOLE [Suspect]
     Active Substance: PHTHALYLSULFATHIAZOLE
     Route: 048
  721. PHTHALYLSULFATHIAZOLE [Suspect]
     Active Substance: PHTHALYLSULFATHIAZOLE
     Route: 048
  722. PHTHALYLSULFATHIAZOLE [Suspect]
     Active Substance: PHTHALYLSULFATHIAZOLE
     Route: 042
  723. PHTHALYLSULFATHIAZOLE [Suspect]
     Active Substance: PHTHALYLSULFATHIAZOLE
     Route: 048
  724. NAPROXEN [Suspect]
     Active Substance: NAPROXEN
     Indication: Rheumatoid arthritis
     Route: 065
  725. RITUXAN [Suspect]
     Active Substance: RITUXIMAB
     Indication: Rheumatoid arthritis
     Route: 042
  726. RITUXAN [Suspect]
     Active Substance: RITUXIMAB
     Route: 041
  727. RITUXAN [Suspect]
     Active Substance: RITUXIMAB
     Route: 058
  728. PERIOGARD [Suspect]
     Active Substance: CHLORHEXIDINE GLUCONATE
     Indication: Product used for unknown indication
     Route: 002
  729. PERIOGARD [Suspect]
     Active Substance: CHLORHEXIDINE GLUCONATE
     Route: 065
  730. PERIOGARD [Suspect]
     Active Substance: CHLORHEXIDINE GLUCONATE
     Route: 048
  731. PERIOGARD [Suspect]
     Active Substance: CHLORHEXIDINE GLUCONATE
     Route: 016
  732. PERIOGARD [Suspect]
     Active Substance: CHLORHEXIDINE GLUCONATE
     Route: 065
  733. TUMS ULTRA [Suspect]
     Active Substance: CALCIUM CARBONATE
     Indication: Product used for unknown indication
     Route: 065
  734. TUMS ULTRA [Suspect]
     Active Substance: CALCIUM CARBONATE
     Route: 065
  735. TUMS ULTRA [Suspect]
     Active Substance: CALCIUM CARBONATE
     Route: 065
  736. TUMS ULTRA [Suspect]
     Active Substance: CALCIUM CARBONATE
     Route: 065
  737. TUMS ULTRA [Suspect]
     Active Substance: CALCIUM CARBONATE
     Route: 016
  738. DICLOFENAC SODIUM [Suspect]
     Active Substance: DICLOFENAC SODIUM
     Indication: Product used for unknown indication
     Route: 065
  739. DICLOFENAC SODIUM [Suspect]
     Active Substance: DICLOFENAC SODIUM
     Route: 047
  740. DICLOFENAC SODIUM [Suspect]
     Active Substance: DICLOFENAC SODIUM
     Route: 047
  741. DICLOFENAC SODIUM [Suspect]
     Active Substance: DICLOFENAC SODIUM
     Route: 065
  742. DICLOFENAC SODIUM [Suspect]
     Active Substance: DICLOFENAC SODIUM
     Route: 065
  743. DICLOFENAC SODIUM [Suspect]
     Active Substance: DICLOFENAC SODIUM
     Route: 047
  744. DICLOFENAC SODIUM [Suspect]
     Active Substance: DICLOFENAC SODIUM
     Route: 058
  745. DICLOFENAC SODIUM [Suspect]
     Active Substance: DICLOFENAC SODIUM
     Route: 058
  746. DICLOFENAC SODIUM [Suspect]
     Active Substance: DICLOFENAC SODIUM
     Route: 047
  747. DICLOFENAC SODIUM [Suspect]
     Active Substance: DICLOFENAC SODIUM
     Dosage: 50 MG, QD
     Route: 065
  748. DICLOFENAC SODIUM [Suspect]
     Active Substance: DICLOFENAC SODIUM
     Route: 065
  749. DICLOFENAC SODIUM [Suspect]
     Active Substance: DICLOFENAC SODIUM
     Route: 048
  750. DICLOFENAC SODIUM [Suspect]
     Active Substance: DICLOFENAC SODIUM
     Route: 065
  751. DICLOFENAC SODIUM [Suspect]
     Active Substance: DICLOFENAC SODIUM
     Route: 065
  752. KEVZARA [Suspect]
     Active Substance: SARILUMAB
     Indication: Product used for unknown indication
     Route: 065
  753. PANTOPRAZOLE SODIUM [Suspect]
     Active Substance: PANTOPRAZOLE SODIUM
     Indication: Product used for unknown indication
     Route: 065
  754. PANTOPRAZOLE SODIUM [Suspect]
     Active Substance: PANTOPRAZOLE SODIUM
     Route: 016
  755. SULFATRIM [Suspect]
     Active Substance: SULFAMETHOXAZOLE\TRIMETHOPRIM
     Indication: Product used for unknown indication
     Route: 067
  756. VITAMIN C [Concomitant]
     Active Substance: ASCORBIC ACID
     Indication: Product used for unknown indication
     Route: 065
  757. VITAMIN C [Concomitant]
     Active Substance: ASCORBIC ACID
     Route: 065
  758. VITAMIN C [Concomitant]
     Active Substance: ASCORBIC ACID
     Route: 065
  759. VITAMIN C [Concomitant]
     Active Substance: ASCORBIC ACID
     Route: 016

REACTIONS (19)
  - Rheumatoid arthritis [Fatal]
  - Stomatitis [Fatal]
  - Systemic lupus erythematosus [Fatal]
  - Weight increased [Fatal]
  - Sinusitis [Fatal]
  - Wound [Fatal]
  - Swelling [Fatal]
  - Drug intolerance [Fatal]
  - Hypersensitivity [Fatal]
  - Joint swelling [Fatal]
  - Blister [Fatal]
  - Pruritus [Fatal]
  - Synovitis [Fatal]
  - Musculoskeletal stiffness [Fatal]
  - Alopecia [Fatal]
  - Impaired healing [Fatal]
  - Sleep disorder due to general medical condition, insomnia type [Fatal]
  - Rash [Fatal]
  - Hepatic enzyme increased [Fatal]
